FAERS Safety Report 10494729 (Version 1)
Quarter: 2014Q4

REPORT INFORMATION
  Report Type: Spontaneous
  Country: US (occurrence: None)
  Receive Date: 20141001
  Receipt Date: 20141001
  Transmission Date: 20150528
  Serious: Yes (Hospitalization, Other)
  Sender: FDA-Public Use
  Company Number: 2014-US-012380

PATIENT
  Age: 57 Year
  Sex: Male
  Weight: 111 kg

DRUGS (9)
  1. WARFARIN SODIUM. [Concomitant]
     Active Substance: WARFARIN SODIUM
  2. LASIX [Concomitant]
     Active Substance: FUROSEMIDE
  3. REMERON [Concomitant]
     Active Substance: MIRTAZAPINE
  4. NUCYNTA (TAPENTADOL HYDROCHLORIDE) [Concomitant]
  5. LEVOTHYROXINE SODIUM. [Concomitant]
     Active Substance: LEVOTHYROXINE SODIUM
  6. POTASSIUM (POTASSIUM BICARBONATE, POTASSIUM CHLORIDE) [Concomitant]
  7. PRIALT [Suspect]
     Active Substance: ZICONOTIDE ACETATE
     Indication: COMPLEX REGIONAL PAIN SYNDROME
     Dosage: UNK UG, QH, INTRATHECAL
     Route: 037
     Dates: start: 201407, end: 2014
  8. PAXIL [Concomitant]
     Active Substance: PAROXETINE HYDROCHLORIDE
  9. NEXIUM [Concomitant]
     Active Substance: ESOMEPRAZOLE MAGNESIUM

REACTIONS (12)
  - Speech disorder [None]
  - Fall [None]
  - Depressed level of consciousness [None]
  - Abnormal behaviour [None]
  - Skin discolouration [None]
  - Decreased appetite [None]
  - Diabetic coma [None]
  - Weight decreased [None]
  - Seizure [None]
  - Pain [None]
  - Amnesia [None]
  - Burning sensation [None]

NARRATIVE: CASE EVENT DATE: 2014
